FAERS Safety Report 24801794 (Version 1)
Quarter: 2025Q1

REPORT INFORMATION
  Report Type: Other
  Country: US (occurrence: US)
  Receive Date: 20250102
  Receipt Date: 20250102
  Transmission Date: 20250409
  Serious: No
  Sender: HLS THERAPEUTICS
  Company Number: US-HLS-202401177

PATIENT
  Age: 20 Year
  Sex: Female

DRUGS (3)
  1. CLOZAPINE [Suspect]
     Active Substance: CLOZAPINE
     Indication: Psychotic disorder
     Route: 065
  2. VENLAFAXINE [Concomitant]
     Active Substance: VENLAFAXINE HYDROCHLORIDE
     Indication: Antidepressant therapy
     Route: 065
  3. CARIPRAZINE [Concomitant]
     Active Substance: CARIPRAZINE
     Indication: Psychotic disorder
     Route: 065

REACTIONS (1)
  - Off label use [Unknown]
